FAERS Safety Report 9880950 (Version 1)
Quarter: 2014Q1

REPORT INFORMATION
  Report Type: Spontaneous
  Country: FR (occurrence: FR)
  Receive Date: 20140207
  Receipt Date: 20140207
  Transmission Date: 20141002
  Serious: Yes (Hospitalization, Other)
  Sender: FDA-Public Use
  Company Number: FR-ELI_LILLY_AND_COMPANY-FR201401009392

PATIENT
  Age: 47 Year
  Sex: Female

DRUGS (9)
  1. CYMBALTA [Suspect]
     Indication: DEPRESSION
     Dosage: 90 MG QD
     Route: 048
  2. FAMPRIDINE [Suspect]
     Indication: MULTIPLE SCLEROSIS
     Dosage: 10 MG, BID
     Route: 048
     Dates: start: 201310, end: 20131019
  3. ATARAX /00058401/ [Suspect]
     Indication: DEPRESSION
     Dosage: 25 MG, QD
     Route: 048
  4. ATARAX /00058401/ [Suspect]
     Dosage: 50 MG, QD
     Route: 048
  5. LYRICA [Suspect]
     Indication: MULTIPLE SCLEROSIS
     Dosage: 100 MG, TID
     Route: 048
  6. LYRICA [Suspect]
     Dosage: 50 MG, BID
     Route: 048
  7. COPAXONE [Concomitant]
     Indication: MULTIPLE SCLEROSIS
     Dosage: 20 MG, QD
     Route: 065
  8. VESICARE [Concomitant]
     Indication: PRODUCT USED FOR UNKNOWN INDICATION
     Dosage: 1 DF, QD (STOPPED SEVERAL DAYS BEFORE)
     Route: 065
  9. CERIS [Concomitant]
     Indication: PRODUCT USED FOR UNKNOWN INDICATION
     Dosage: 20 MG, QD
     Route: 065

REACTIONS (4)
  - Systemic inflammatory response syndrome [Unknown]
  - Renal failure acute [Unknown]
  - Pyelonephritis [Recovered/Resolved]
  - Confusional state [Recovered/Resolved]
